FAERS Safety Report 4535826-7 (Version None)
Quarter: 2004Q4

REPORT INFORMATION
  Report Type: 
  Country: None (occurrence: None)
  Receive Date: 20041223
  Receipt Date: 20040408
  Transmission Date: 20050328
  Serious: No
  Sender: FDA-Public Use
  Company Number: US-GLAXOSMITHKLINE-A0506380A

PATIENT
  Age: 70 Year
  Sex: Female

DRUGS (5)
  1. FLONASE [Suspect]
     Route: 045
     Dates: start: 20000101
  2. CLARINEX [Suspect]
     Route: 048
     Dates: end: 20040201
  3. ATROVENT [Concomitant]
  4. ZYRTEC [Concomitant]
  5. PRILOSEC [Concomitant]

REACTIONS (1)
  - DRY EYE [None]
